FAERS Safety Report 5564806-8 (Version None)
Quarter: 2007Q4

REPORT INFORMATION
  Report Type: 
  Country: None (occurrence: None)
  Receive Date: 20071214
  Receipt Date: 20071214
  Transmission Date: 20080405
  Serious: Yes (Other)
  Sender: FDA-Public Use
  Company Number: None

PATIENT
  Age: 5 Year
  Sex: Female
  Weight: 25.855 kg

DRUGS (1)
  1. PHENERGAN HCL [Suspect]
     Indication: NAUSEA

REACTIONS (7)
  - ABNORMAL BEHAVIOUR [None]
  - AGGRESSION [None]
  - AGITATION [None]
  - DYSARTHRIA [None]
  - SCREAMING [None]
  - SPEECH DISORDER [None]
  - URINARY INCONTINENCE [None]
